FAERS Safety Report 7293541-3 (Version None)
Quarter: 2011Q1

REPORT INFORMATION
  Report Type: 
  Country: None (occurrence: None)
  Receive Date: 20110215
  Receipt Date: 20110210
  Transmission Date: 20110831
  Serious: Yes (Hospitalization)
  Sender: FDA-Public Use
  Company Number: US-MERCK-1011USA02958

PATIENT
  Age: 63 Year
  Sex: Female

DRUGS (8)
  1. JANUVIA [Suspect]
     Route: 048
  2. JANUVIA [Suspect]
     Indication: BLOOD GLUCOSE ABNORMAL
     Route: 048
     Dates: start: 20070101
  3. LORAZEPAM [Concomitant]
     Route: 065
  4. LIPITOR [Concomitant]
     Indication: DEPRESSION
     Route: 065
  5. LIPITOR [Concomitant]
     Indication: BLOOD PRESSURE
     Route: 065
  6. INSULIN [Concomitant]
     Route: 065
  7. ASPIRIN [Concomitant]
     Route: 065
  8. MICARDIS [Concomitant]
     Route: 065

REACTIONS (4)
  - MALAISE [None]
  - KIDNEY ENLARGEMENT [None]
  - HEADACHE [None]
  - WRONG TECHNIQUE IN DRUG USAGE PROCESS [None]
